FAERS Safety Report 8431407-3 (Version None)
Quarter: 2012Q2

REPORT INFORMATION
  Report Type: 
  Country: None (occurrence: None)
  Receive Date: 20120605
  Receipt Date: 20120522
  Transmission Date: 20120825
  Serious: Yes (Hospitalization, Other)
  Sender: FDA-Public Use
  Company Number: 2012MA005580

PATIENT
  Age: 67 Year
  Sex: Male
  Weight: 65 kg

DRUGS (3)
  1. TS-1 (NO PREF. NAME) [Suspect]
     Indication: GASTRIC CANCER STAGE IV
  2. PACLITAXEL [Suspect]
     Indication: GASTRIC CANCER STAGE IV
     Dates: start: 20100501
  3. LENTINAN (LENTINAN) [Suspect]
     Indication: GASTRIC CANCER STAGE IV

REACTIONS (5)
  - DYSPNOEA [None]
  - PULMONARY TOXICITY [None]
  - HYPOXIA [None]
  - COUGH [None]
  - LYMPHOCYTE STIMULATION TEST POSITIVE [None]
